FAERS Safety Report 8747648 (Version 4)
Quarter: 2014Q4

REPORT INFORMATION
  Report Type: Spontaneous
  Country: US (occurrence: US)
  Receive Date: 20120827
  Receipt Date: 20141022
  Transmission Date: 20150529
  Serious: Yes (Hospitalization, Disabling, Other)
  Sender: FDA-Public Use
  Company Number: US-009507513-1208USA008460

PATIENT
  Sex: Female
  Weight: 124.72 kg

DRUGS (1)
  1. NUVARING [Suspect]
     Active Substance: ETHINYL ESTRADIOL\ETONOGESTREL
     Indication: CONTRACEPTION
     Dosage: UNK, Q30 DAYS
     Route: 067
     Dates: start: 2006, end: 2010

REACTIONS (16)
  - Papilloedema [Unknown]
  - Hypoacusis [Unknown]
  - Unintended pregnancy [Recovered/Resolved]
  - Ear pain [Unknown]
  - Migraine [Unknown]
  - Depression [Unknown]
  - Pain [Unknown]
  - Gastric bypass [Unknown]
  - Ear discomfort [Unknown]
  - Deep vein thrombosis [Unknown]
  - General symptom [Unknown]
  - Superior sagittal sinus thrombosis [Unknown]
  - Gallbladder disorder [Unknown]
  - Abortion spontaneous [Unknown]
  - Injury [Unknown]
  - Infection [Unknown]

NARRATIVE: CASE EVENT DATE: 2006
